FAERS Safety Report 4645834-3 (Version None)
Quarter: 2005Q2

REPORT INFORMATION
  Report Type: 
  Country: None (occurrence: None)
  Receive Date: 20050425
  Receipt Date: 20050408
  Transmission Date: 20051028
  Serious: Yes (Hospitalization)
  Sender: FDA-Public Use
  Company Number: 8009621

PATIENT
  Age: 26 Year
  Sex: Male
  Weight: 70 kg

DRUGS (9)
  1. KEPPRA [Suspect]
     Indication: PARTIAL SEIZURES
     Dosage: 500 MG 2/D PO
     Route: 048
     Dates: start: 20040216, end: 20040304
  2. KEPPRA [Suspect]
     Indication: PARTIAL SEIZURES
     Dosage: 2000 MG /D PO
     Route: 048
     Dates: start: 20040305, end: 20041221
  3. KEPPRA [Suspect]
     Indication: PARTIAL SEIZURES
     Dosage: 1500 MG 2/D PO
     Route: 048
     Dates: start: 20041222, end: 20050224
  4. KEPPRA [Suspect]
     Indication: PARTIAL SEIZURES
     Dosage: 1000 MG /D PO
     Route: 048
     Dates: start: 20050225
  5. ERGENYL [Suspect]
     Dosage: 1200 MG /D
     Dates: end: 20040101
  6. FRISIUM [Concomitant]
  7. PETNIDAN [Concomitant]
  8. LORAZEPAM [Concomitant]
  9. ANTELEPSIN [Concomitant]

REACTIONS (3)
  - AGGRESSION [None]
  - ANGER [None]
  - ENCEPHALOPATHY [None]
